FAERS Safety Report 20204643 (Version 1)
Quarter: 2021Q4

REPORT INFORMATION
  Report Type: Spontaneous
  Country: HU (occurrence: HU)
  Receive Date: 20211220
  Receipt Date: 20211220
  Transmission Date: 20220303
  Serious: Yes (Death, Hospitalization)
  Sender: FDA-Public Use
  Company Number: HU-ABBVIE-21K-076-4205008-00

PATIENT
  Sex: Male

DRUGS (7)
  1. CARBIDOPA\LEVODOPA [Suspect]
     Active Substance: CARBIDOPA\LEVODOPA
     Indication: Parkinson^s disease
     Dosage: MORNING DOSE: 4.0 ML; CONTINUOUS DOSE: 3.0 ML/HOUR; EXTRA DOSE: 1.0 ML
     Route: 050
     Dates: start: 20191016
  2. CARBIDOPA\LEVODOPA [Suspect]
     Active Substance: CARBIDOPA\LEVODOPA
  3. BENSERAZIDE HYDROCHLORIDE\LEVODOPA [Concomitant]
     Active Substance: BENSERAZIDE HYDROCHLORIDE\LEVODOPA
     Indication: Product used for unknown indication
     Dosage: 200 MG LEVODOPA, 50 MG BENSERAZIDE PER TABLET?FREQUENCY: TWO AND HALF TABLET
  4. NEUPRO [Concomitant]
     Active Substance: ROTIGOTINE
     Indication: Product used for unknown indication
     Dosage: FREQUENCY: ONE PATCH IN THE MORNING, ONE PATCH IN THE EVENING
  5. NEUPRO [Concomitant]
     Active Substance: ROTIGOTINE
     Dosage: FREQUENCY: ONE PATCH IN THE EVENING
  6. CITALOPRAM [Concomitant]
     Active Substance: CITALOPRAM HYDROBROMIDE
     Indication: Product used for unknown indication
  7. RIVOTRIL [Concomitant]
     Active Substance: CLONAZEPAM
     Indication: Product used for unknown indication
     Dosage: FREQUENCY: 0.5 MG AT THE EVENING

REACTIONS (5)
  - Circulatory collapse [Fatal]
  - Respiratory failure [Fatal]
  - General physical health deterioration [Unknown]
  - Cystitis [Unknown]
  - Pneumonia [Unknown]

NARRATIVE: CASE EVENT DATE: 20211204
